FAERS Safety Report 14162965 (Version 1)
Quarter: 2017Q4

REPORT INFORMATION
  Report Type: Spontaneous
  Country: US (occurrence: US)
  Receive Date: 20171107
  Receipt Date: 20171107
  Transmission Date: 20180321
  Serious: No
  Sender: FDA-Public Use
  Company Number: PHEH2017US035119

PATIENT
  Age: 69 Year
  Sex: Female
  Weight: 62.59 kg

DRUGS (1)
  1. EZETIMIBE. [Suspect]
     Active Substance: EZETIMIBE
     Indication: HYPERCHOLESTEROLAEMIA
     Dosage: 1 DF, QD
     Route: 065
     Dates: start: 20170913, end: 20171019

REACTIONS (10)
  - Gingival pain [Recovering/Resolving]
  - Headache [Recovering/Resolving]
  - Groin pain [Recovering/Resolving]
  - Gait disturbance [Recovering/Resolving]
  - Swollen tongue [Recovering/Resolving]
  - Musculoskeletal discomfort [Recovering/Resolving]
  - Pain in extremity [Recovering/Resolving]
  - Tongue erythema [Recovering/Resolving]
  - Gingival swelling [Recovering/Resolving]
  - Trichoglossia [Recovering/Resolving]

NARRATIVE: CASE EVENT DATE: 201710
